FAERS Safety Report 8500848-8 (Version None)
Quarter: 2012Q3

REPORT INFORMATION
  Report Type: 
  Country: None (occurrence: None)
  Receive Date: 20120710
  Receipt Date: 20120709
  Transmission Date: 20120928
  Serious: Yes (Other)
  Sender: FDA-Public Use
  Company Number: RU-ROCHE-1086042

PATIENT
  Sex: Male
  Weight: 100 kg

DRUGS (2)
  1. PEGASYS [Suspect]
     Indication: HEPATITIS C
     Dosage: LAST DOSE PRIOR TO SAE: 05 JULY 2012
     Route: 058
     Dates: start: 20120621, end: 20120709
  2. COPEGUS [Suspect]
     Indication: HEPATITIS C
     Dosage: LAST DOSE PRIOR TO SAE: 08 JULY 2012
     Route: 048
     Dates: start: 20120621, end: 20120709

REACTIONS (2)
  - DEPRESSION [None]
  - PHOBIA [None]
